FAERS Safety Report 9123532 (Version 2)
Quarter: 2013Q2

REPORT INFORMATION
  Report Type: Spontaneous
  Country: US (occurrence: US)
  Receive Date: 20130227
  Receipt Date: 20130423
  Transmission Date: 20140414
  Serious: No
  Sender: FDA-Public Use
  Company Number: US-009507513-1302USA011629

PATIENT
  Age: 55 Year
  Sex: Male
  Weight: 75.74 kg

DRUGS (11)
  1. PEGINTRON [Suspect]
     Indication: HEPATITIS C
     Dosage: UNK
     Dates: start: 20130207
  2. REBETOL [Suspect]
     Indication: HEPATITIS C
     Dosage: UNK
     Route: 048
     Dates: start: 20130207
  3. VICTRELIS [Suspect]
     Indication: HEPATITIS C
     Dosage: UNK
     Route: 048
     Dates: start: 20130307
  4. NEURONTIN [Concomitant]
     Indication: ARTHRITIS
  5. ZOLOFT [Concomitant]
     Indication: DEPRESSION
  6. SEROQUEL [Concomitant]
     Indication: DEPRESSION
  7. TRAZODONE HYDROCHLORIDE [Concomitant]
  8. KLONOPIN [Concomitant]
  9. VITAMINS (UNSPECIFIED) [Concomitant]
  10. MILK THISTLE [Concomitant]
  11. ACIDOPHILUS [Concomitant]

REACTIONS (4)
  - Weight decreased [Unknown]
  - Asthenia [Unknown]
  - Decreased appetite [Unknown]
  - Insomnia [Unknown]
